FAERS Safety Report 4316108-5 (Version None)
Quarter: 2004Q1

REPORT INFORMATION
  Report Type: 
  Country: None (occurrence: None)
  Receive Date: 20040310
  Receipt Date: 20020430
  Transmission Date: 20041129
  Serious: Yes (Hospitalization)
  Sender: FDA-Public Use
  Company Number: 30018692-02A31G41-1

PATIENT
  Age: 79 Year
  Sex: Male

DRUGS (1)
  1. EXTRANEAL [Suspect]
     Indication: DIALYSIS
     Dosage: 7.5% ICODEXTRIN - UNKNOWN
     Dates: start: 20010808, end: 20020410

REACTIONS (6)
  - ABDOMINAL DISTENSION [None]
  - ABDOMINAL PAIN [None]
  - BODY TEMPERATURE INCREASED [None]
  - FLATULENCE [None]
  - PERITONEAL FLUID ANALYSIS ABNORMAL [None]
  - SIGMOIDITIS [None]
